FAERS Safety Report 10921599 (Version 1)
Quarter: 2015Q1

REPORT INFORMATION
  Report Type: Spontaneous
  Country: US (occurrence: None)
  Receive Date: 20150313
  Receipt Date: 20150313
  Transmission Date: 20150721
  Serious: Yes (Hospitalization)
  Sender: FDA-Public Use
  Company Number: None

PATIENT
  Age: 79 Year
  Sex: Male
  Weight: 74 kg

DRUGS (3)
  1. CEPHALEXIN. [Suspect]
     Active Substance: CEPHALEXIN
     Indication: SEPSIS
     Route: 048
     Dates: start: 20150106, end: 20150115
  2. CEPHALEXIN. [Suspect]
     Active Substance: CEPHALEXIN
     Indication: PYELONEPHRITIS
     Route: 048
     Dates: start: 20150106, end: 20150115
  3. CEPHALEXIN. [Suspect]
     Active Substance: CEPHALEXIN
     Indication: ESCHERICHIA BACTERAEMIA
     Route: 048
     Dates: start: 20150106, end: 20150115

REACTIONS (4)
  - Hepatic enzyme increased [None]
  - Abdominal pain [None]
  - Jaundice [None]
  - Cholestasis [None]

NARRATIVE: CASE EVENT DATE: 20150202
